FAERS Safety Report 7238881-9 (Version None)
Quarter: 2011Q1

REPORT INFORMATION
  Report Type: 
  Country: None (occurrence: None)
  Receive Date: 20110121
  Receipt Date: 20110113
  Transmission Date: 20110831
  Serious: Yes (Hospitalization, Other)
  Sender: FDA-Public Use
  Company Number: PHEH2006US04720

PATIENT
  Sex: Male

DRUGS (61)
  1. ZYRTEC [Concomitant]
  2. PROMETHAZINE [Concomitant]
     Dosage: 25 MG, PRN
     Route: 048
     Dates: start: 20090430
  3. NORTRIPTYLINE [Concomitant]
  4. ACYCLOVIR [Concomitant]
  5. CHLORHEXIDINE GLUCONATE [Concomitant]
  6. XANAX [Concomitant]
  7. CIPRO [Concomitant]
  8. NEXIUM [Concomitant]
  9. NORVASC [Concomitant]
     Dosage: 5 MG, QD
     Route: 048
  10. LEVAQUIN [Concomitant]
  11. NORVASC [Concomitant]
  12. VALIUM [Concomitant]
  13. VANCOMYCIN [Concomitant]
  14. ALEVE [Concomitant]
     Dosage: 220 MG, QD
  15. REGLAN [Concomitant]
  16. PREVACID [Concomitant]
  17. LISINOPRIL [Concomitant]
  18. OXYCODONE [Concomitant]
  19. ZITHROMAX [Concomitant]
  20. ZOVIRAX [Concomitant]
  21. ANAPROX [Concomitant]
  22. CATAPRES [Concomitant]
     Dosage: 1 DF, QW
     Route: 062
     Dates: start: 20090416
  23. PREDNISONE [Concomitant]
  24. ZINACEF                                 /UNK/ [Concomitant]
  25. ACCUPRIL [Concomitant]
  26. MEGACE [Concomitant]
  27. AUGMENTIN '125' [Concomitant]
  28. FENTANYL [Concomitant]
  29. PERCOCET [Concomitant]
  30. NEURONTIN [Concomitant]
  31. DIFLUCAN [Concomitant]
  32. VERSED [Concomitant]
  33. CYMBALTA [Concomitant]
     Dosage: 30 MG, BID
     Route: 048
     Dates: start: 20090417
  34. ALBUTEROL SULFATE [Concomitant]
     Dosage: 1 VIAL 4XDAY
     Dates: start: 20090520
  35. REVLIMID [Concomitant]
  36. FLEXERIL [Concomitant]
  37. AXID [Concomitant]
  38. CLINDAMYCIN [Concomitant]
     Dosage: 150 MG, Q6H
  39. AMOXICILLIN [Concomitant]
  40. FAMVIR                                  /NET/ [Concomitant]
  41. OXYCODONE HCL AND ACETAMINOPHEN [Concomitant]
  42. PRILOSEC [Concomitant]
  43. ERYTHROMYCIN [Concomitant]
  44. KLOR-CON [Concomitant]
  45. CYCLOBENZAPRINE [Concomitant]
  46. AREDIA [Suspect]
     Dosage: 90 MG, UNK
     Route: 042
  47. ZOMETA [Suspect]
     Dosage: 4 MG, UNK
     Route: 042
  48. DECADRON [Concomitant]
  49. ONDANSETRON [Concomitant]
     Dosage: 1 DF, PRN
     Route: 048
     Dates: start: 20090427
  50. WARFARIN SODIUM [Concomitant]
     Dosage: 1 MG, QD
  51. CLARITIN-D [Concomitant]
  52. ZELNORM                                 /CAN/ [Concomitant]
  53. DIPRIVAN [Concomitant]
  54. LEXAPRO [Concomitant]
  55. AMBIEN [Concomitant]
  56. HYDROCODONE [Concomitant]
  57. MEDROL [Concomitant]
  58. PROTONIX [Concomitant]
  59. DEMEROL [Concomitant]
  60. REQUIP [Concomitant]
  61. LYRICA [Concomitant]

REACTIONS (73)
  - AORTIC ANEURYSM [None]
  - DYSPHAGIA [None]
  - PNEUMONIA [None]
  - RASH ERYTHEMATOUS [None]
  - VOMITING [None]
  - NEUTROPENIA [None]
  - HYPOXIA [None]
  - HELICOBACTER TEST POSITIVE [None]
  - LYMPHATIC SYSTEM NEOPLASM [None]
  - NEOPLASM MALIGNANT [None]
  - HYPOAESTHESIA [None]
  - GASTRIC CANCER RECURRENT [None]
  - GASTROOESOPHAGEAL REFLUX DISEASE [None]
  - DECREASED APPETITE [None]
  - DEPRESSION [None]
  - LUNG NEOPLASM MALIGNANT [None]
  - HAEMOPHILUS BACTERAEMIA [None]
  - MALAISE [None]
  - INTERVERTEBRAL DISC PROTRUSION [None]
  - ANXIETY [None]
  - LACERATION [None]
  - ATELECTASIS [None]
  - ALTERED STATE OF CONSCIOUSNESS [None]
  - OSTEOARTHRITIS [None]
  - PAIN [None]
  - EMOTIONAL DISTRESS [None]
  - SINUSITIS [None]
  - RECTAL HAEMORRHAGE [None]
  - ABDOMINAL PAIN [None]
  - PARAESTHESIA [None]
  - NAUSEA [None]
  - SCOLIOSIS [None]
  - SINUS TACHYCARDIA [None]
  - FOOT FRACTURE [None]
  - SINUS BRADYCARDIA [None]
  - PANCREATIC CARCINOMA [None]
  - INTERVERTEBRAL DISC SPACE NARROWING [None]
  - CERVICAL SPINAL STENOSIS [None]
  - OBSTRUCTION GASTRIC [None]
  - ABDOMINAL WOUND DEHISCENCE [None]
  - ARTHRALGIA [None]
  - RESPIRATORY FAILURE [None]
  - PANCYTOPENIA [None]
  - FATIGUE [None]
  - RHINORRHOEA [None]
  - OESOPHAGITIS ULCERATIVE [None]
  - PERIPHERAL NERVE INJURY [None]
  - HAEMORRHOIDS [None]
  - CHRONIC OBSTRUCTIVE PULMONARY DISEASE [None]
  - WEIGHT DECREASED [None]
  - MALNUTRITION [None]
  - INJURY [None]
  - DEVICE RELATED INFECTION [None]
  - HIATUS HERNIA [None]
  - RESTLESS LEGS SYNDROME [None]
  - METASTASES TO BONE [None]
  - IMPAIRED GASTRIC EMPTYING [None]
  - NEUROPATHY PERIPHERAL [None]
  - OSTEONECROSIS OF JAW [None]
  - PAIN IN JAW [None]
  - MOUTH ULCERATION [None]
  - SCROTAL CYST [None]
  - COLON ADENOMA [None]
  - MUSCULAR WEAKNESS [None]
  - ACUTE LEUKAEMIA [None]
  - LYMPHOMA [None]
  - HYPOTENSION [None]
  - GASTRIC ULCER [None]
  - ANAEMIA [None]
  - CONSTIPATION [None]
  - BRONCHITIS [None]
  - GINGIVAL PAIN [None]
  - THROMBOCYTOPENIA [None]
